FAERS Safety Report 19055895 (Version 1)
Quarter: 2021Q1

REPORT INFORMATION
  Report Type: Spontaneous
  Country: DE (occurrence: DE)
  Receive Date: 20210324
  Receipt Date: 20210324
  Transmission Date: 20210420
  Serious: Yes (Death)
  Sender: FDA-Public Use
  Company Number: DE-PFIZER INC-2021299553

PATIENT
  Age: 92 Year
  Sex: Female

DRUGS (1)
  1. TAVOR EXPIDET [Suspect]
     Active Substance: LORAZEPAM
     Indication: INSOMNIA
     Dosage: 3?4 MG, DAILY (^3?4 MG OVER THE DAY^)

REACTIONS (3)
  - Drug ineffective [Unknown]
  - Wrong technique in product usage process [Unknown]
  - Death [Fatal]
